FAERS Safety Report 5146108-7 (Version None)
Quarter: 2006Q4

REPORT INFORMATION
  Report Type: 
  Country: None (occurrence: None)
  Receive Date: 20061108
  Receipt Date: 20061003
  Transmission Date: 20070319
  Serious: Yes (Hospitalization, Disabling, Other)
  Sender: FDA-Public Use
  Company Number: 2006UW19349

PATIENT
  Age: 67 Year
  Sex: Female

DRUGS (5)
  1. CRESTOR [Suspect]
     Indication: HYPERLIPIDAEMIA
     Route: 048
     Dates: start: 20060101, end: 20060801
  2. DIDROCAL [Concomitant]
  3. CALCIUM [Concomitant]
  4. VITAMIN D [Concomitant]
  5. SYNTHROID [Concomitant]

REACTIONS (7)
  - DERMATOMYOSITIS [None]
  - ECZEMA [None]
  - INCISION SITE INFECTION [None]
  - LUNG DISORDER [None]
  - RASH PRURITIC [None]
  - THERAPY NON-RESPONDER [None]
  - WOUND INFECTION [None]
